FAERS Safety Report 11248944 (Version 4)
Quarter: 2015Q3

REPORT INFORMATION
  Report Type: Spontaneous
  Country: US (occurrence: US)
  Receive Date: 20150708
  Receipt Date: 20150903
  Transmission Date: 20151125
  Serious: Yes (Hospitalization, Disabling, Other)
  Sender: FDA-Public Use
  Company Number: US-ELI_LILLY_AND_COMPANY-US201003005346

PATIENT
  Sex: Male

DRUGS (23)
  1. EFFEXOR [Concomitant]
     Active Substance: VENLAFAXINE HYDROCHLORIDE
     Dosage: 1 D/F, UNK
     Dates: start: 2007, end: 2007
  2. CYMBALTA [Suspect]
     Active Substance: DULOXETINE HYDROCHLORIDE
     Indication: DEPRESSION
     Dosage: 120 MG, QD
     Dates: start: 2007
  3. FEXOFENADINE HYDROCHLORIDE. [Concomitant]
     Active Substance: FEXOFENADINE HYDROCHLORIDE
  4. LIPITOR [Concomitant]
     Active Substance: ATORVASTATIN CALCIUM
  5. LOVENOX [Concomitant]
     Active Substance: ENOXAPARIN SODIUM
     Indication: DENTAL OPERATION
  6. BISACODYL. [Concomitant]
     Active Substance: BISACODYL
  7. PROZAC [Suspect]
     Active Substance: FLUOXETINE HYDROCHLORIDE
     Indication: DEPRESSION
     Dosage: 40 MG, QD
     Dates: start: 1987, end: 2005
  8. CYMBALTA [Suspect]
     Active Substance: DULOXETINE HYDROCHLORIDE
     Dosage: 60 MG, QD
     Dates: start: 2007
  9. COUMADIN [Concomitant]
     Active Substance: WARFARIN SODIUM
  10. HYDROCODONE [Concomitant]
     Active Substance: HYDROCODONE
  11. MAGNESIUM OXIDE. [Concomitant]
     Active Substance: MAGNESIUM OXIDE
  12. VITAMIN C [Concomitant]
     Active Substance: ASCORBIC ACID
  13. NIMESULIDE [Concomitant]
     Active Substance: NIMESULIDE
  14. COLACE [Concomitant]
     Active Substance: DOCUSATE SODIUM
  15. ZOLPIDEM TARTRATE. [Concomitant]
     Active Substance: ZOLPIDEM TARTRATE
  16. CYMBALTA [Suspect]
     Active Substance: DULOXETINE HYDROCHLORIDE
     Dosage: 30 MG, QD
  17. PAXIL [Concomitant]
     Active Substance: PAROXETINE HYDROCHLORIDE
     Dosage: 1 D/F, UNK
     Dates: start: 2007, end: 2007
  18. LORTAB [Concomitant]
     Active Substance: ACETAMINOPHEN\HYDROCODONE BITARTRATE
  19. ASPIRIN. [Concomitant]
     Active Substance: ASPIRIN
  20. WELLBUTRIN [Concomitant]
     Active Substance: BUPROPION HYDROCHLORIDE
     Dosage: 1 D/F, UNK
     Dates: start: 2007, end: 2007
  21. FENTANYL. [Concomitant]
     Active Substance: FENTANYL
  22. CLONAZEPAM. [Concomitant]
     Active Substance: CLONAZEPAM
  23. VITAMIN D [Concomitant]
     Active Substance: CHOLECALCIFEROL

REACTIONS (15)
  - Paraesthesia [Unknown]
  - Sinusitis [Unknown]
  - Weight decreased [Unknown]
  - Memory impairment [Unknown]
  - Sexual dysfunction [Unknown]
  - Dizziness [Unknown]
  - Weight increased [Recovered/Resolved]
  - Medication error [Unknown]
  - Hypoaesthesia [Unknown]
  - Tooth extraction [Unknown]
  - Cerebrovascular accident [Unknown]
  - Weight increased [Unknown]
  - General physical health deterioration [Unknown]
  - Abdominal discomfort [Unknown]
  - Feeling cold [Unknown]

NARRATIVE: CASE EVENT DATE: 1987
